FAERS Safety Report 10196441 (Version 1)
Quarter: 2014Q2

REPORT INFORMATION
  Report Type: Spontaneous
  Country: US (occurrence: US)
  Receive Date: 20140527
  Receipt Date: 20140527
  Transmission Date: 20141212
  Serious: Yes (Hospitalization)
  Sender: FDA-Public Use
  Company Number: US-BAYER-2014-076890

PATIENT
  Age: 34 Year
  Sex: Female
  Weight: 93.88 kg

DRUGS (4)
  1. YAZ [Suspect]
     Indication: ACNE
     Dosage: UNK
     Dates: start: 20090901, end: 20091229
  2. SYNTHROID [Concomitant]
     Indication: HYPOTHYROIDISM
  3. ACCUTANE [Concomitant]
     Indication: ACNE
     Dosage: 40 MG, QD
     Route: 048
     Dates: start: 20091001
  4. BIOTIN [Concomitant]

REACTIONS (3)
  - Deep vein thrombosis [None]
  - Post thrombotic syndrome [None]
  - Pain in extremity [None]
